FAERS Safety Report 17241669 (Version 2)
Quarter: 2020Q2

REPORT INFORMATION
  Report Type: Spontaneous
  Country: IN (occurrence: IN)
  Receive Date: 20200107
  Receipt Date: 20200414
  Transmission Date: 20200713
  Serious: Yes (Other)
  Sender: FDA-Public Use
  Company Number: IN-PFIZER INC-2018516928

PATIENT
  Age: 55 Year
  Sex: Male

DRUGS (1)
  1. SUTENT [Suspect]
     Active Substance: SUNITINIB MALATE
     Indication: METASTATIC RENAL CELL CARCINOMA
     Dosage: 50 MG, CYCLIC (ONCE DAILY; 14 DAYS THEN STOP FOR 7 DAYS)
     Route: 048
     Dates: start: 20181213

REACTIONS (6)
  - Immune thrombocytopenia [Unknown]
  - Bronchial disorder [Recovering/Resolving]
  - Pulmonary mass [Recovering/Resolving]
  - Haemoptysis [Unknown]
  - Malaise [Unknown]
  - Hypothyroidism [Unknown]

NARRATIVE: CASE EVENT DATE: 201904
